FAERS Safety Report 19366682 (Version 1)
Quarter: 2021Q2

REPORT INFORMATION
  Report Type: Spontaneous
  Country: QA (occurrence: QA)
  Receive Date: 20210603
  Receipt Date: 20210603
  Transmission Date: 20210717
  Serious: Yes (Hospitalization)
  Sender: FDA-Public Use
  Company Number: QA-STRIDES ARCOLAB LIMITED-2021SP006054

PATIENT
  Age: 12 Year
  Sex: Male

DRUGS (7)
  1. CETIRIZINE [Suspect]
     Active Substance: CETIRIZINE HYDROCHLORIDE
     Indication: VENOMOUS STING
     Dosage: UNK
     Route: 048
  2. HYDROCORTISONE. [Suspect]
     Active Substance: HYDROCORTISONE
     Indication: VENOMOUS STING
     Dosage: UNK
     Route: 061
  3. CLINDAMYCIN. [Concomitant]
     Active Substance: CLINDAMYCIN
     Indication: VENOMOUS STING
     Dosage: UNK
     Route: 042
  4. ACETAMINOPHEN. [Concomitant]
     Active Substance: ACETAMINOPHEN
     Indication: VENOMOUS STING
     Dosage: UNK
     Route: 042
  5. HYDROCORTISONE. [Suspect]
     Active Substance: HYDROCORTISONE
     Dosage: UNK
     Route: 042
  6. DIPHENHYDRAMINE. [Concomitant]
     Active Substance: DIPHENHYDRAMINE
     Indication: VENOMOUS STING
     Dosage: UNK
     Route: 042
  7. IBUPROFEN. [Suspect]
     Active Substance: IBUPROFEN
     Indication: VENOMOUS STING
     Dosage: UNK
     Route: 065

REACTIONS (4)
  - Off label use [Unknown]
  - Pain [Recovered/Resolved]
  - Intentional product misuse [Unknown]
  - Drug ineffective [Unknown]
